FAERS Safety Report 25756786 (Version 1)
Quarter: 2025Q3

REPORT INFORMATION
  Report Type: Spontaneous
  Country: US (occurrence: None)
  Receive Date: 20250903
  Receipt Date: 20250903
  Transmission Date: 20251021
  Serious: Yes (Hospitalization)
  Sender: FDA-CTU
  Company Number: None

PATIENT
  Age: 5 Year
  Sex: Male
  Weight: 29.4 kg

DRUGS (7)
  1. CYCLOPHOSPHAMIDE [Suspect]
     Active Substance: CYCLOPHOSPHAMIDE
     Dates: end: 20240209
  2. TOPOTECAN [Suspect]
     Active Substance: TOPOTECAN HYDROCHLORIDE
     Dates: end: 20240209
  3. ETOPOSIDE [Suspect]
     Active Substance: ETOPOSIDE
  4. CARBOPLATIN [Suspect]
     Active Substance: CARBOPLATIN
  5. MESNA [Suspect]
     Active Substance: MESNA
  6. IFOSFAMIDE [Suspect]
     Active Substance: IFOSFAMIDE
  7. RADIATION THERAPY [Suspect]
     Active Substance: RADIATION THERAPY

REACTIONS (4)
  - Fatigue [None]
  - Pain in extremity [None]
  - Acute myeloid leukaemia [None]
  - Therapy cessation [None]

NARRATIVE: CASE EVENT DATE: 20250813
